FAERS Safety Report 9934628 (Version 1)
Quarter: 2014Q1

REPORT INFORMATION
  Report Type: Spontaneous
  Country: US (occurrence: US)
  Receive Date: 20140228
  Receipt Date: 20140228
  Transmission Date: 20141002
  Serious: No
  Sender: FDA-Public Use
  Company Number: US-ASTRAZENECA-2013SE72246

PATIENT
  Age: 69 Year
  Sex: Male
  Weight: 122.5 kg

DRUGS (6)
  1. TOPROL [Suspect]
     Indication: HYPERTENSION
     Dosage: GENERIC
     Route: 048
     Dates: start: 2006
  2. TOPROL [Suspect]
     Indication: MITRAL VALVE REPAIR
     Dosage: GENERIC
     Route: 048
     Dates: start: 2006
  3. PROTONIX [Concomitant]
  4. STATIN [Concomitant]
  5. VITAMIN C [Concomitant]
  6. MULTIVITAMIN [Concomitant]

REACTIONS (2)
  - Cough [Unknown]
  - Headache [Unknown]
